FAERS Safety Report 21883103 (Version 1)
Quarter: 2023Q1

REPORT INFORMATION
  Report Type: Spontaneous
  Country: US (occurrence: None)
  Receive Date: 20230119
  Receipt Date: 20230119
  Transmission Date: 20230418
  Serious: Yes (Life-Threatening, Other)
  Sender: FDA-Public Use
  Company Number: US-MICRO LABS LIMITED-ML2023-00245

PATIENT
  Age: 82 Year
  Sex: Female

DRUGS (2)
  1. VERAPAMIL HYDROCHLORIDE [Suspect]
     Active Substance: VERAPAMIL HYDROCHLORIDE
     Indication: Atrial fibrillation
  2. METOPROLOL [Suspect]
     Active Substance: METOPROLOL
     Indication: Hypertension

REACTIONS (2)
  - BRASH syndrome [Recovering/Resolving]
  - Overdose [Unknown]
